FAERS Safety Report 19881375 (Version 2)
Quarter: 2021Q3

REPORT INFORMATION
  Report Type: Spontaneous
  Country: US (occurrence: US)
  Receive Date: 20210925
  Receipt Date: 20210930
  Transmission Date: 20211014
  Serious: Yes (Other)
  Sender: FDA-Public Use
  Company Number: US-SA-2021SA313660

PATIENT
  Sex: Female

DRUGS (1)
  1. ICY HOT DRY [Suspect]
     Active Substance: MENTHOL
     Dosage: UNK

REACTIONS (2)
  - Feeling abnormal [Unknown]
  - Choking [Unknown]
